FAERS Safety Report 8961598 (Version 1)
Quarter: 2012Q4

REPORT INFORMATION
  Report Type: 
  Country: US (occurrence: US)
  Receive Date: 20121213
  Receipt Date: 20121213
  Transmission Date: 20130627
  Serious: No
  Sender: FDA-Public Use
  Company Number: US-ALLERGAN-1215988US

PATIENT
  Age: 87 Year
  Sex: Female

DRUGS (4)
  1. LUMIGAN� 0.01% [Suspect]
     Indication: GLAUCOMA
     Dosage: UNK
     Route: 047
  2. HIGH BLOOD PRESSURE MEDICATION NOS [Concomitant]
     Indication: HYPERTENSION
     Dosage: UNK
  3. HIGH CHOLESTEROL MEDICATION NOS [Concomitant]
     Indication: HIGH CHOLESTEROL
     Dosage: UNK
  4. SUPPLEMENTS [Concomitant]
     Indication: SUPPLEMENTATION THERAPY
     Dosage: UNK

REACTIONS (1)
  - Ocular hyperaemia [Not Recovered/Not Resolved]
